FAERS Safety Report 6079913-3 (Version None)
Quarter: 2009Q1

REPORT INFORMATION
  Report Type: 
  Country: None (occurrence: None)
  Receive Date: 20090217
  Receipt Date: 20090204
  Transmission Date: 20090719
  Serious: Yes (Other)
  Sender: FDA-Public Use
  Company Number: BR-ROCHE-612877

PATIENT
  Sex: Female

DRUGS (1)
  1. PEG-INTERFERON ALFA 2A (RO 25-8310) [Suspect]
     Route: 065

REACTIONS (5)
  - FACIAL BONES FRACTURE [None]
  - FALL [None]
  - HAEMORRHAGE [None]
  - OEDEMA PERIPHERAL [None]
  - PNEUMONIA [None]
